FAERS Safety Report 17020976 (Version 2)
Quarter: 2020Q1

REPORT INFORMATION
  Report Type: Spontaneous
  Country: US (occurrence: US)
  Receive Date: 20191112
  Receipt Date: 20200107
  Transmission Date: 20200409
  Serious: No
  Sender: FDA-Public Use
  Company Number: US-BAYER-2019-203865

PATIENT
  Age: 74 Year
  Sex: Female
  Weight: 92 kg

DRUGS (2)
  1. CHOLESTEROL HEALTH [Concomitant]
     Dosage: UNK
  2. CLARITIN [Suspect]
     Active Substance: LORATADINE
     Indication: VIRAL INFECTION
     Dosage: 1 DF
     Route: 048
     Dates: start: 20191106, end: 20191110

REACTIONS (6)
  - Product use in unapproved indication [Unknown]
  - Product lot number issue [None]
  - Chest discomfort [Unknown]
  - Wheezing [Unknown]
  - Off label use [Unknown]
  - Therapeutic response unexpected [Unknown]

NARRATIVE: CASE EVENT DATE: 201911
